FAERS Safety Report 8610642-5 (Version None)
Quarter: 2012Q3

REPORT INFORMATION
  Report Type: 
  Country: None (occurrence: None)
  Receive Date: 20120808
  Receipt Date: 20120727
  Transmission Date: 20120928
  Serious: Yes (Hospitalization)
  Sender: FDA-Public Use
  Company Number: TIR-01204

PATIENT
  Age: 57 Year
  Sex: Female
  Weight: 53.5244 kg

DRUGS (9)
  1. UNSPECIFIED VITAMINS [Concomitant]
  2. FUROSEMIDE [Concomitant]
  3. DEMADEX [Concomitant]
  4. LEVOTHYROXINE SODIUM [Suspect]
     Indication: BASEDOW'S DISEASE
     Dosage: 100MCG CAPSULE NIGHTLY, ORAL
     Route: 048
     Dates: start: 20120626, end: 20120630
  5. LEVOTHYROXINE SODIUM [Suspect]
     Indication: RADIOACTIVE IODINE THERAPY
     Dosage: 100MCG CAPSULE NIGHTLY, ORAL
     Route: 048
     Dates: start: 20120626, end: 20120630
  6. LEVOTHYROXINE SODIUM [Suspect]
     Indication: HYPOTHYROIDISM
     Dosage: 100MCG CAPSULE NIGHTLY, ORAL
     Route: 048
     Dates: start: 20120626, end: 20120630
  7. LYRICA [Concomitant]
  8. XANAX [Concomitant]
  9. UNSPECIFIED EYE DROPS [Concomitant]

REACTIONS (5)
  - ATRIAL FIBRILLATION [None]
  - HEART RATE INCREASED [None]
  - MALAISE [None]
  - CHEST PAIN [None]
  - ASTHENIA [None]
